FAERS Safety Report 7824953-4 (Version None)
Quarter: 2011Q4

REPORT INFORMATION
  Report Type: 
  Country: None (occurrence: None)
  Receive Date: 20111019
  Receipt Date: 20110923
  Transmission Date: 20120403
  Serious: No
  Sender: FDA-Public Use
  Company Number: US-BRISTOL-MYERS SQUIBB COMPANY-15595200

PATIENT
  Age: 68 Year
  Sex: Female
  Weight: 95 kg

DRUGS (4)
  1. HYDROCHLOROTHIAZIDE [Concomitant]
  2. AVALIDE [Suspect]
     Indication: HYPERTENSION
     Dosage: 1 DF = 300/12.5 MG,ABOUT 12-13 YEARS AGO
  3. SINGULAIR [Concomitant]
  4. LISINOPRIL [Concomitant]

REACTIONS (4)
  - HYPERTENSION [None]
  - PROTEINURIA [None]
  - ASTHMA [None]
  - DRUG INEFFECTIVE [None]
